FAERS Safety Report 18919050 (Version 1)
Quarter: 2021Q1

REPORT INFORMATION
  Report Type: Spontaneous
  Country: DE (occurrence: DE)
  Receive Date: 20210220
  Receipt Date: 20210220
  Transmission Date: 20210420
  Serious: Yes (Life-Threatening, Hospitalization, Other)
  Sender: FDA-Public Use
  Company Number: NVSC2021DE039267

PATIENT
  Age: 87 Year
  Sex: Female

DRUGS (2)
  1. METFORMIN [Suspect]
     Active Substance: METFORMIN HYDROCHLORIDE
     Indication: TYPE 2 DIABETES MELLITUS
     Dosage: 1000 MG, Q12H (1000 MG 1?0?1)
     Route: 048
     Dates: start: 2016, end: 20210208
  2. METAMIZOL [Concomitant]
     Active Substance: METAMIZOLE SODIUM
     Indication: HUMERUS FRACTURE
     Dosage: UNK
     Route: 065
     Dates: start: 202102

REACTIONS (5)
  - Lactic acidosis [Recovering/Resolving]
  - Acute kidney injury [Unknown]
  - Diabetes mellitus inadequate control [Unknown]
  - Hyperglycaemia [Unknown]
  - Dehydration [Unknown]

NARRATIVE: CASE EVENT DATE: 202102
